FAERS Safety Report 9720723 (Version 1)
Quarter: 2013Q4

REPORT INFORMATION
  Report Type: Report from Study
  Country: BR (occurrence: BR)
  Receive Date: 20131129
  Receipt Date: 20131129
  Transmission Date: 20140711
  Serious: Yes (Death, Hospitalization, Other)
  Sender: FDA-Public Use
  Company Number: PHHY2013BR137325

PATIENT
  Sex: Female
  Weight: 55 kg

DRUGS (1)
  1. EXELON [Suspect]
     Indication: MEMORY IMPAIRMENT
     Dosage: 3 MG, ONCE IN THE MORNING
     Route: 048
     Dates: start: 2013

REACTIONS (3)
  - Cerebrovascular accident [Fatal]
  - Ischaemia [Fatal]
  - Malaise [Unknown]
